FAERS Safety Report 7794062-1 (Version None)
Quarter: 2011Q4

REPORT INFORMATION
  Report Type: 
  Country: None (occurrence: None)
  Receive Date: 20111004
  Receipt Date: 20110920
  Transmission Date: 20120403
  Serious: Yes (Hospitalization)
  Sender: FDA-Public Use
  Company Number: CA-JNJFOC-20110909768

PATIENT
  Sex: Female

DRUGS (6)
  1. VITAMIN B-12 [Concomitant]
     Route: 065
  2. PURINETHOL [Concomitant]
     Route: 065
  3. HORMONES [Concomitant]
     Route: 065
  4. REMICADE [Suspect]
     Indication: CROHN'S DISEASE
     Route: 042
     Dates: start: 20110912
  5. HYDROCORTISONE [Concomitant]
     Indication: PREMEDICATION
     Route: 042
  6. FOLIC ACID [Concomitant]
     Route: 065

REACTIONS (7)
  - PARAESTHESIA [None]
  - PHARYNGEAL ERYTHEMA [None]
  - OEDEMA PERIPHERAL [None]
  - TYPE IV HYPERSENSITIVITY REACTION [None]
  - DYSPHONIA [None]
  - URTICARIA [None]
  - ERYTHEMA [None]
